FAERS Safety Report 6695715-9 (Version None)
Quarter: 2010Q2

REPORT INFORMATION
  Report Type: 
  Country: None (occurrence: None)
  Receive Date: 20100426
  Receipt Date: 20100421
  Transmission Date: 20101027
  Serious: Yes (Other)
  Sender: FDA-Public Use
  Company Number: US-RB-007673-10

PATIENT
  Sex: Female

DRUGS (1)
  1. MUCINEX DM [Suspect]
     Dosage: TOOK TWO TABLETS IN THE MORNING AND ONE TABLET AT NIGHT FOR 2.5 DAYS.
     Route: 048
     Dates: start: 20100419

REACTIONS (1)
  - PRESYNCOPE [None]
